FAERS Safety Report 24736074 (Version 1)
Quarter: 2024Q4

REPORT INFORMATION
  Report Type: Spontaneous
  Country: US (occurrence: US)
  Receive Date: 20241216
  Receipt Date: 20241216
  Transmission Date: 20250114
  Serious: No
  Sender: OXFORD PHARMACEUTICALS, LLC
  Company Number: US-Oxford Pharmaceuticals, LLC-2167143

PATIENT
  Age: 39 Year
  Sex: Female

DRUGS (1)
  1. SPIRONOLACTONE [Suspect]
     Active Substance: SPIRONOLACTONE
     Indication: Acne
     Dates: start: 20241109

REACTIONS (1)
  - Pharyngeal swelling [Not Recovered/Not Resolved]
